FAERS Safety Report 9222362 (Version 2)
Quarter: 2013Q3

REPORT INFORMATION
  Report Type: Spontaneous
  Country: FI (occurrence: FI)
  Receive Date: 20130410
  Receipt Date: 20130703
  Transmission Date: 20140515
  Serious: Yes (Other)
  Sender: FDA-Public Use
  Company Number: FI-AMGEN-FINSP2013024360

PATIENT
  Age: 44 Year
  Sex: Female

DRUGS (3)
  1. XGEVA [Suspect]
     Indication: METASTASES TO BREAST
     Dosage: 120 MG, Q4WK
     Dates: start: 201111
  2. XGEVA [Suspect]
     Indication: METASTASES TO SPINE
  3. ZOMETA [Suspect]
     Indication: PRODUCT USED FOR UNKNOWN INDICATION
     Dosage: UNK
     Dates: start: 2004, end: 2011

REACTIONS (2)
  - Femoral neck fracture [Unknown]
  - Groin pain [Unknown]
